FAERS Safety Report 4865189-9 (Version None)
Quarter: 2005Q4

REPORT INFORMATION
  Report Type: 
  Country: None (occurrence: None)
  Receive Date: 20051223
  Receipt Date: 20051222
  Transmission Date: 20060501
  Serious: Yes (Other)
  Sender: FDA-Public Use
  Company Number: US-GLAXOSMITHKLINE-A0586838A

PATIENT
  Age: 49 Year
  Sex: Female

DRUGS (3)
  1. WELLBUTRIN [Suspect]
     Indication: DEPRESSION
     Route: 048
     Dates: start: 20010101
  2. PAXIL [Concomitant]
  3. SERZONE [Concomitant]

REACTIONS (2)
  - ORGASMIC SENSATION DECREASED [None]
  - SUICIDAL IDEATION [None]
